FAERS Safety Report 6715515-0 (Version None)
Quarter: 2010Q2

REPORT INFORMATION
  Report Type: 
  Country: None (occurrence: None)
  Receive Date: 20100507
  Receipt Date: 20100426
  Transmission Date: 20101027
  Serious: Yes (Other)
  Sender: FDA-Public Use
  Company Number: PHHY2010MX26775

PATIENT

DRUGS (1)
  1. IMATINIB [Suspect]
     Route: 065

REACTIONS (1)
  - PULMONARY TOXICITY [None]
